FAERS Safety Report 12196628 (Version 1)
Quarter: 2016Q1

REPORT INFORMATION
  Report Type: Spontaneous
  Country: US (occurrence: US)
  Receive Date: 20160321
  Receipt Date: 20160321
  Transmission Date: 20160526
  Serious: Yes (Other)
  Sender: FDA-Public Use
  Company Number: GXBR2010US01315

PATIENT
  Sex: Male

DRUGS (1)
  1. METOCLOPRAMIDE TABLETS USP [Suspect]
     Active Substance: METOCLOPRAMIDE
     Indication: GASTROINTESTINAL DISORDER
     Dosage: UNK DF, UNK
     Route: 065
     Dates: start: 199604, end: 200001

REACTIONS (3)
  - Extrapyramidal disorder [Unknown]
  - Tardive dyskinesia [Unknown]
  - Dyskinesia [Unknown]
